FAERS Safety Report 5894936-2 (Version None)
Quarter: 2008Q3

REPORT INFORMATION
  Report Type: 
  Country: None (occurrence: None)
  Receive Date: 20080924
  Receipt Date: 20080917
  Transmission Date: 20090109
  Serious: Yes (Other)
  Sender: FDA-Public Use
  Company Number: PHHY2008BR21760

PATIENT
  Age: 71 Year
  Sex: Male
  Weight: 86 kg

DRUGS (3)
  1. EXFORGE [Suspect]
     Indication: HYPERTENSION
     Dosage: 1 TABLET DAILY
     Route: 048
  2. TENORETIC 100 [Concomitant]
     Indication: HYPERTENSION
     Dosage: 1 TABLET IN THE MORNING
     Route: 048
  3. SYNTHROID [Concomitant]
     Dosage: 1 TABLET IN MORNING
     Route: 048
     Dates: start: 19960101

REACTIONS (13)
  - BLOOD PRESSURE INCREASED [None]
  - CATARACT OPERATION [None]
  - DRY MOUTH [None]
  - DYSPNOEA [None]
  - ERYTHEMA [None]
  - EYE PRURITUS [None]
  - HYPOAESTHESIA [None]
  - HYPOAESTHESIA ORAL [None]
  - NERVOUSNESS [None]
  - PARAESTHESIA [None]
  - PHYSICAL ASSAULT [None]
  - PRURITUS GENERALISED [None]
  - TONGUE DRY [None]
